FAERS Safety Report 6971238-4 (Version None)
Quarter: 2010Q3

REPORT INFORMATION
  Report Type: 
  Country: None (occurrence: None)
  Receive Date: 20100908
  Receipt Date: 20100831
  Transmission Date: 20110219
  Serious: Yes (Hospitalization)
  Sender: FDA-Public Use
  Company Number: JP-BRISTOL-MYERS SQUIBB COMPANY-14597371

PATIENT
  Age: 58 Year
  Sex: Male

DRUGS (4)
  1. ABILIFY [Suspect]
     Dosage: 24MG, QD ON UNK DATE
     Route: 048
     Dates: start: 20061101
  2. AMOBAN [Suspect]
     Dosage: TAB
     Route: 048
  3. EVAMYL [Suspect]
     Dosage: TABLET
     Route: 048
  4. DEPAKENE [Suspect]
     Route: 048

REACTIONS (2)
  - ABNORMAL SENSATION IN EYE [None]
  - GASTROINTESTINAL HAEMORRHAGE [None]
